FAERS Safety Report 5941565-8 (Version None)
Quarter: 2008Q4

REPORT INFORMATION
  Report Type: 
  Country: None (occurrence: None)
  Receive Date: 20081104
  Receipt Date: 20081104
  Transmission Date: 20090506
  Serious: Yes (Hospitalization)
  Sender: FDA-Public Use
  Company Number: None

PATIENT
  Age: 57 Year
  Sex: Male
  Weight: 83.9154 kg

DRUGS (1)
  1. CELEBREX [Suspect]
     Indication: ANTIINFLAMMATORY THERAPY
     Dosage: ONE TABLET TWICE DAILY PO
     Route: 048
     Dates: start: 20081102, end: 20081102

REACTIONS (3)
  - DYSPHAGIA [None]
  - EMOTIONAL DISTRESS [None]
  - PARAESTHESIA [None]
